FAERS Safety Report 17163469 (Version 1)
Quarter: 2019Q4

REPORT INFORMATION
  Report Type: Spontaneous
  Country: IT (occurrence: IT)
  Receive Date: 20191217
  Receipt Date: 20191217
  Transmission Date: 20200122
  Serious: Yes (Hospitalization)
  Sender: FDA-Public Use
  Company Number: IT-TEVA-2019-IT-1152687

PATIENT
  Age: 92 Year
  Sex: Female

DRUGS (12)
  1. PROZIN [FLUOXETINE HYDROCHLORIDE] [Suspect]
     Active Substance: FLUOXETINE HYDROCHLORIDE
     Indication: PSYCHOTIC DISORDER
     Dosage: 25 MG
     Route: 048
     Dates: start: 20190101, end: 20191019
  2. HUMALOG [Concomitant]
     Active Substance: INSULIN LISPRO
     Dosage: 60 IU
  3. LANSOX [Concomitant]
     Active Substance: LANSOPRAZOLE
     Dosage: 30 MG
  4. TORVAST [Concomitant]
     Active Substance: ATORVASTATIN
     Dosage: 20 MG
  5. FUROSEMIDE. [Concomitant]
     Active Substance: FUROSEMIDE
     Dosage: 25 MG
  6. ZYLLT [Concomitant]
     Active Substance: CLOPIDOGREL BISULFATE
     Dosage: 75 MG
  7. BISOPROLOL FUMARATE. [Concomitant]
     Active Substance: BISOPROLOL FUMARATE
  8. KANRENOL [Concomitant]
     Active Substance: CANRENOATE POTASSIUM
     Dosage: 100 MG
  9. CARDIOASPIRIN [Concomitant]
     Active Substance: ASPIRIN
  10. MIRTAZAPINE. [Suspect]
     Active Substance: MIRTAZAPINE
     Indication: SLEEP DISORDER
     Dosage: 30 MG
     Route: 048
     Dates: start: 20190101, end: 20191019
  11. TARGIN 20 MG/10MG COMPRESSE A RILASCIO PROLUNGATO [Suspect]
     Active Substance: NALOXONE HYDROCHLORIDE\OXYCODONE HYDROCHLORIDE
     Indication: PAIN
     Dosage: 1 DOSAGE FORMS
     Route: 048
     Dates: start: 20190101, end: 20191019
  12. LANTUS [Concomitant]
     Active Substance: INSULIN GLARGINE
     Dosage: 12 IU

REACTIONS (2)
  - Sopor [Unknown]
  - Agitation [Unknown]

NARRATIVE: CASE EVENT DATE: 20191019
